FAERS Safety Report 6769484-8 (Version None)
Quarter: 2010Q2

REPORT INFORMATION
  Report Type: 
  Country: None (occurrence: None)
  Receive Date: 20100615
  Receipt Date: 20100604
  Transmission Date: 20101027
  Serious: Yes (Hospitalization)
  Sender: FDA-Public Use
  Company Number: TW-BRISTOL-MYERS SQUIBB COMPANY-15145600

PATIENT
  Age: 10 Year
  Sex: Male

DRUGS (9)
  1. ABILIFY [Suspect]
     Indication: TIC
     Dosage: 15MG/DAY:ORAL.
     Route: 048
  2. ABILIFY [Suspect]
     Indication: MANIA
     Dosage: 15MG/DAY:ORAL.
     Route: 048
  3. PERGOLIDE [Suspect]
     Indication: TIC
  4. AMISULPRIDE [Suspect]
     Indication: TIC
     Route: 048
  5. HALOPERIDOL [Suspect]
     Indication: TIC
     Route: 048
  6. RISPERIDONE [Suspect]
     Indication: TIC
     Route: 048
  7. LITHIUM [Concomitant]
  8. CLONIDINE [Concomitant]
  9. CLONAZEPAM [Concomitant]

REACTIONS (3)
  - AGGRESSION [None]
  - EUPHORIC MOOD [None]
  - IRRITABILITY [None]
